FAERS Safety Report 6842749-7 (Version None)
Quarter: 2010Q3

REPORT INFORMATION
  Report Type: 
  Country: None (occurrence: None)
  Receive Date: 20100714
  Receipt Date: 20071212
  Transmission Date: 20110219
  Serious: No
  Sender: FDA-Public Use
  Company Number: US-PFIZER INC-2007064286

PATIENT
  Sex: Male
  Weight: 108.9 kg

DRUGS (3)
  1. CHANTIX [Suspect]
     Indication: SMOKING CESSATION THERAPY
     Dates: start: 20070618
  2. SYNTHROID [Concomitant]
  3. AMBIEN [Concomitant]
     Indication: SLEEP DISORDER

REACTIONS (2)
  - ABNORMAL SENSATION IN EYE [None]
  - HEADACHE [None]
